FAERS Safety Report 9886801 (Version 1)
Quarter: 2014Q1

REPORT INFORMATION
  Report Type: Spontaneous
  Country: IT (occurrence: IT)
  Receive Date: 20140210
  Receipt Date: 20140210
  Transmission Date: 20141002
  Serious: Yes (Other)
  Sender: FDA-Public Use
  Company Number: IT-BAXTER-2014BAX005301

PATIENT
  Age: 59 Year
  Sex: Male

DRUGS (2)
  1. AERRANE [Suspect]
     Indication: OCCUPATIONAL EXPOSURE TO PRODUCT
     Route: 065
  2. SEVOFLURANE BAXTER [Suspect]
     Indication: OCCUPATIONAL EXPOSURE TO PRODUCT
     Route: 065

REACTIONS (2)
  - Occupational exposure to product [Unknown]
  - Parkinson^s disease [Unknown]
